FAERS Safety Report 20325306 (Version 1)
Quarter: 2022Q1

REPORT INFORMATION
  Report Type: Spontaneous
  Country: US (occurrence: US)
  Receive Date: 20220112
  Receipt Date: 20220112
  Transmission Date: 20220424
  Serious: Yes (Hospitalization, Other)
  Sender: FDA-Public Use
  Company Number: US-CIPLA LTD.-2022US00037

PATIENT

DRUGS (2)
  1. GEMCITABINE [Suspect]
     Active Substance: GEMCITABINE
     Indication: Cutaneous T-cell lymphoma stage IV
     Dosage: 1000 MG/M2 ON DAYS 1, 8, AND 15 OF A 28-DAY CYCLE
     Route: 065
  2. GEMCITABINE [Suspect]
     Active Substance: GEMCITABINE
     Dosage: 750 MG/M2 EVERY OTHER WEEK STARTING WITH CYCLE 3
     Route: 065

REACTIONS (4)
  - Intervertebral discitis [Unknown]
  - Sepsis [Unknown]
  - Staphylococcal bacteraemia [Unknown]
  - Neutropenia [Recovered/Resolved]
